FAERS Safety Report 4711711-2 (Version None)
Quarter: 2005Q2

REPORT INFORMATION
  Report Type: 
  Country: None (occurrence: None)
  Receive Date: 20050629
  Receipt Date: 20050426
  Transmission Date: 20051028
  Serious: No
  Sender: FDA-Public Use
  Company Number: 05P-163-0298509-00

PATIENT
  Age: 58 Year
  Sex: Female
  Weight: 56.6996 kg

DRUGS (8)
  1. HUMIRA [Suspect]
     Indication: RHEUMATOID ARTHRITIS
     Dosage: SEE IMAGE
     Route: 058
     Dates: start: 20030401, end: 20050101
  2. HUMIRA [Suspect]
     Indication: RHEUMATOID ARTHRITIS
     Dosage: SEE IMAGE
     Route: 058
     Dates: start: 20050101, end: 20050301
  3. ESTRACE [Concomitant]
  4. VITAMINS [Concomitant]
  5. CALCIUM GLUCONATE [Concomitant]
  6. MINICYCLINE [Concomitant]
  7. METHOTREXATE [Concomitant]
  8. PREDNISONE [Concomitant]

REACTIONS (4)
  - DIARRHOEA [None]
  - PYREXIA [None]
  - RHEUMATOID ARTHRITIS [None]
  - VOMITING [None]
